FAERS Safety Report 8307011-4 (Version None)
Quarter: 2012Q2

REPORT INFORMATION
  Report Type: 
  Country: None (occurrence: None)
  Receive Date: 20120424
  Receipt Date: 20120417
  Transmission Date: 20120825
  Serious: Yes (Hospitalization)
  Sender: FDA-Public Use
  Company Number: PHHY2012VE034069

PATIENT
  Sex: Female

DRUGS (4)
  1. ZOLEDRONOC ACID [Suspect]
     Indication: OSTEOPOROSIS
     Dosage: 5 MG / YEARLY, UNK
     Route: 042
     Dates: start: 20110215
  2. HYPERLIPEN [Concomitant]
     Dosage: 100 MG, QD
     Route: 048
     Dates: start: 20090101
  3. ZOLEDRONOC ACID [Suspect]
     Dosage: 5 MG / YEARLY, UNK
     Route: 042
     Dates: start: 20120225
  4. CRESTOR [Concomitant]
     Dosage: 20 MG, QD
     Route: 048
     Dates: start: 20090101

REACTIONS (4)
  - FALL [None]
  - HIP FRACTURE [None]
  - PAIN [None]
  - FEMUR FRACTURE [None]
